FAERS Safety Report 6937154-9 (Version None)
Quarter: 2010Q3

REPORT INFORMATION
  Report Type: 
  Country: None (occurrence: None)
  Receive Date: 20100823
  Receipt Date: 20100809
  Transmission Date: 20110219
  Serious: Yes (Hospitalization)
  Sender: FDA-Public Use
  Company Number: A0809162A

PATIENT
  Age: 58 Year
  Sex: Male
  Weight: 120.5 kg

DRUGS (7)
  1. AVANDIA [Suspect]
     Indication: DIABETES MELLITUS
     Dosage: 8MG PER DAY
     Route: 048
     Dates: start: 20000401, end: 20070101
  2. LOTREL [Concomitant]
  3. LASIX [Concomitant]
  4. GLUCOVANCE [Concomitant]
  5. LABETALOL HCL [Concomitant]
  6. ZOCOR [Concomitant]
  7. ADVAIR DISKUS 100/50 [Concomitant]

REACTIONS (2)
  - CARDIAC FAILURE CONGESTIVE [None]
  - MYOCARDIAL INFARCTION [None]
